FAERS Safety Report 10238806 (Version 1)
Quarter: 2014Q2

REPORT INFORMATION
  Report Type: Spontaneous
  Country: US (occurrence: None)
  Receive Date: 20140613
  Receipt Date: 20140613
  Transmission Date: 20141212
  Serious: Yes (Other)
  Sender: FDA-Public Use
  Company Number: None

PATIENT
  Sex: Female

DRUGS (5)
  1. ICY HOT CREAM [Suspect]
     Indication: BACK PAIN
     Route: 061
     Dates: start: 20130205, end: 20130210
  2. PRAVASTATN [Concomitant]
  3. IBP [Concomitant]
  4. MUSCLE RELAXER [Concomitant]
  5. INFLANTOIER MEDICANE [Concomitant]

REACTIONS (5)
  - Swollen tongue [None]
  - Tongue blistering [None]
  - Eating disorder [None]
  - Nausea [None]
  - Dysgeusia [None]
